FAERS Safety Report 10660216 (Version 2)
Quarter: 2014Q4

REPORT INFORMATION
  Report Type: Spontaneous
  Country: US (occurrence: US)
  Receive Date: 20141217
  Receipt Date: 20141217
  Transmission Date: 20150529
  Serious: No
  Sender: FDA-Public Use
  Company Number: US-GLAXOSMITHKLINE-A1081322A

PATIENT

DRUGS (1)
  1. VOTRIENT [Suspect]
     Active Substance: PAZOPANIB HYDROCHLORIDE
     Indication: RENAL CANCER
     Dosage: 200 MG TABLETS
     Route: 065

REACTIONS (7)
  - Fatigue [Unknown]
  - Liver function test abnormal [Unknown]
  - Lacrimation increased [Unknown]
  - Blister [Unknown]
  - Feeling cold [Unknown]
  - Rhinorrhoea [Unknown]
  - Hepatic enzyme increased [Unknown]
